FAERS Safety Report 5514818-5 (Version None)
Quarter: 2007Q4

REPORT INFORMATION
  Report Type: 
  Country: None (occurrence: None)
  Receive Date: 20071113
  Receipt Date: 20071106
  Transmission Date: 20080405
  Serious: Yes (Hospitalization)
  Sender: FDA-Public Use
  Company Number: US-SHR-US-2007-037044

PATIENT
  Age: 64 Year
  Sex: Female
  Weight: 97.506 kg

DRUGS (13)
  1. BETASERON [Suspect]
     Indication: RELAPSING-REMITTING MULTIPLE SCLEROSIS
     Dosage: 8 MIU, EVERY 2D
     Route: 058
     Dates: start: 19981001, end: 20070806
  2. BONIVA [Concomitant]
     Dosage: 150 MG, 1X/MONTH
     Route: 048
     Dates: start: 20070801
  3. NORTRIPTYLINE HCL [Concomitant]
     Dosage: 25 MG/D, BED T.
  4. OMEPRAZOLE [Concomitant]
     Dosage: 10 MG, 1X/DAY
     Route: 048
  5. SONATA [Concomitant]
     Dosage: 5 MG, AS REQ'D @BED TIME
  6. CENTRUM A TO ZINC [Concomitant]
  7. ASCORBIC ACID [Concomitant]
     Dosage: 500 MG, UNK
  8. VITAMIN E [Concomitant]
     Dosage: 400 IU, UNK
  9. LECITHIN [Concomitant]
     Dosage: 1200 MG, UNK
  10. CALCIUM WITH VITAMIN D [Concomitant]
     Dosage: 600 MG, UNK
  11. FISH OIL [Concomitant]
     Dosage: 1000 MG, UNK
  12. VITAMIN B-12 [Concomitant]
  13. NEUROTROPIN [Concomitant]

REACTIONS (3)
  - BODY TEMPERATURE INCREASED [None]
  - FEELING ABNORMAL [None]
  - JOINT RESURFACING SURGERY [None]
